FAERS Safety Report 14574258 (Version 1)
Quarter: 2018Q1

REPORT INFORMATION
  Report Type: Spontaneous
  Country: US (occurrence: US)
  Receive Date: 20180226
  Receipt Date: 20180226
  Transmission Date: 20180509
  Serious: No
  Sender: FDA-Public Use
  Company Number: US-ELI_LILLY_AND_COMPANY-US201802009446

PATIENT
  Sex: Female

DRUGS (1)
  1. TRULICITY [Suspect]
     Active Substance: DULAGLUTIDE
     Indication: PRODUCT USED FOR UNKNOWN INDICATION
     Dosage: 1.5 MG, UNKNOWN
     Route: 065
     Dates: start: 201712

REACTIONS (15)
  - Eructation [Unknown]
  - Vomiting [Unknown]
  - Abdominal pain upper [Unknown]
  - Depression [Unknown]
  - Nausea [Unknown]
  - Diarrhoea [Unknown]
  - Affect lability [Unknown]
  - Haematochezia [Unknown]
  - Arthropathy [Unknown]
  - Hypersensitivity [Unknown]
  - Feeling abnormal [Unknown]
  - Headache [Unknown]
  - Drug level increased [Unknown]
  - Malaise [Unknown]
  - Fatigue [Unknown]
